FAERS Safety Report 7381539-6 (Version None)
Quarter: 2011Q1

REPORT INFORMATION
  Report Type: 
  Country: None (occurrence: None)
  Receive Date: 20110329
  Receipt Date: 20110325
  Transmission Date: 20110831
  Serious: Yes (Other)
  Sender: FDA-Public Use
  Company Number: JP-PFIZER INC-2011067592

PATIENT
  Age: 53 Year
  Sex: Male

DRUGS (1)
  1. TEMSIROLIMUS [Suspect]
     Dosage: 25 MG, 1X/DAY
     Route: 041
     Dates: start: 20110120

REACTIONS (2)
  - STOMATITIS [None]
  - CONVULSION [None]
